FAERS Safety Report 22641449 (Version 1)
Quarter: 2023Q2

REPORT INFORMATION
  Report Type: Spontaneous
  Country: RU (occurrence: None)
  Receive Date: 20230626
  Receipt Date: 20230626
  Transmission Date: 20230722
  Serious: Yes (Life-Threatening)
  Sender: FDA-Public Use
  Company Number: 2023A146177

PATIENT
  Sex: Female

DRUGS (2)
  1. NEXIUM [Suspect]
     Active Substance: ESOMEPRAZOLE MAGNESIUM
     Route: 048
  2. TRIMEDAT [Concomitant]

REACTIONS (4)
  - Near death experience [Unknown]
  - Dizziness [Unknown]
  - Eructation [Recovered/Resolved]
  - Abdominal distension [Recovered/Resolved]
